FAERS Safety Report 24536755 (Version 1)
Quarter: 2024Q4

REPORT INFORMATION
  Report Type: Spontaneous
  Country: US (occurrence: US)
  Receive Date: 20241022
  Receipt Date: 20241022
  Transmission Date: 20250114
  Serious: No
  Sender: SANOFI AVENTIS
  Company Number: US-SA-2024SA301196

PATIENT
  Sex: Female

DRUGS (20)
  1. DUPIXENT [Suspect]
     Active Substance: DUPILUMAB
     Indication: Asthma
     Dosage: 300 MG, QOW
     Route: 058
  2. ALBUTEROL SULFATE [Concomitant]
     Active Substance: ALBUTEROL SULFATE
  3. ALLOPURINOL [Concomitant]
     Active Substance: ALLOPURINOL
  4. ASPIRIN [Concomitant]
     Active Substance: ASPIRIN
  5. ATORVASTATIN [Concomitant]
     Active Substance: ATORVASTATIN
  6. BREZTRI [Concomitant]
     Active Substance: BUDESONIDE\FORMOTEROL\GLYCOPYRROLATE
  7. FARXIGA [Concomitant]
     Active Substance: DAPAGLIFLOZIN PROPANEDIOL
  8. FUROSEMIDE [Concomitant]
     Active Substance: FUROSEMIDE
  9. GABAPENTIN [Concomitant]
     Active Substance: GABAPENTIN
  10. GLIMEPIRIDE [Concomitant]
     Active Substance: GLIMEPIRIDE
  11. INDOMETHACIN [Concomitant]
     Active Substance: INDOMETHACIN
  12. MAGNESIUM [Concomitant]
     Active Substance: MAGNESIUM
  13. METOPROLOL [Concomitant]
     Active Substance: METOPROLOL
  14. MONTELUKAST [Concomitant]
     Active Substance: MONTELUKAST
  15. MOUNJARO [Concomitant]
     Active Substance: TIRZEPATIDE
  16. NITROGLYCERIN [Concomitant]
     Active Substance: NITROGLYCERIN
  17. PANTOPRAZOLE [Concomitant]
     Active Substance: PANTOPRAZOLE
  18. SPIRONOLACTONE [Concomitant]
     Active Substance: SPIRONOLACTONE
  19. LANTUS [Concomitant]
     Active Substance: INSULIN GLARGINE
  20. METHIMAZOLE [Concomitant]
     Active Substance: METHIMAZOLE

REACTIONS (3)
  - Abdominal hernia [Unknown]
  - Injection site pain [Unknown]
  - Product dose omission in error [Unknown]
